FAERS Safety Report 5423307-8 (Version None)
Quarter: 2007Q3

REPORT INFORMATION
  Report Type: 
  Country: None (occurrence: None)
  Receive Date: 20070730
  Receipt Date: 20070322
  Transmission Date: 20080115
  Serious: Yes (Other)
  Sender: FDA-Public Use
  Company Number: 200710553BWH

PATIENT
  Sex: Female

DRUGS (2)
  1. AVELOX [Suspect]
     Indication: SINUSITIS
     Dosage: QD, ORAL
     Route: 048
  2. METFORMIN HCL [Concomitant]

REACTIONS (6)
  - FATIGUE [None]
  - HYPERHIDROSIS [None]
  - NERVOUS SYSTEM DISORDER [None]
  - ORAL DISORDER [None]
  - SKIN LESION [None]
  - STEVENS-JOHNSON SYNDROME [None]
